FAERS Safety Report 9064454 (Version 3)
Quarter: 2013Q2

REPORT INFORMATION
  Report Type: Spontaneous
  Country: VE (occurrence: VE)
  Receive Date: 20130214
  Receipt Date: 20130429
  Transmission Date: 20140414
  Serious: Yes (Death, Hospitalization)
  Sender: FDA-Public Use
  Company Number: VE-AMGEN-VENSP2013009756

PATIENT
  Age: 39 Year
  Sex: Male
  Weight: 52 kg

DRUGS (2)
  1. VECTIBIX [Suspect]
     Indication: COLORECTAL CANCER METASTATIC
     Dosage: 10 CYCLES OF 6 MG/KG, EVERY TWO WEEKS
     Route: 042
     Dates: start: 20120925, end: 20130205
  2. XELODA [Concomitant]
     Indication: COLORECTAL CANCER METASTATIC
     Dosage: UNK

REACTIONS (3)
  - Hepatic failure [Fatal]
  - Disease progression [Fatal]
  - Coma hepatic [Fatal]
